FAERS Safety Report 24428609 (Version 2)
Quarter: 2024Q4

REPORT INFORMATION
  Report Type: Spontaneous
  Country: FR (occurrence: FR)
  Receive Date: 20241011
  Receipt Date: 20241210
  Transmission Date: 20250115
  Serious: Yes (Hospitalization)
  Sender: SANDOZ
  Company Number: FR-002147023-NVSC2024FR198999

PATIENT
  Age: 49 Year
  Sex: Female

DRUGS (2)
  1. TOBRADEX [Suspect]
     Active Substance: DEXAMETHASONE\TOBRAMYCIN
     Indication: Strabismus correction
     Dosage: UNK
     Route: 065
     Dates: start: 20240828
  2. AZOPT [Concomitant]
     Active Substance: BRINZOLAMIDE
     Indication: Product used for unknown indication
     Dosage: 1 DRP, QD (ONE DROP IN THE MORNING)
     Route: 065

REACTIONS (4)
  - General physical health deterioration [Unknown]
  - Gait disturbance [Unknown]
  - Drug intolerance [Unknown]
  - Faeces discoloured [Unknown]

NARRATIVE: CASE EVENT DATE: 20240828
